FAERS Safety Report 5078110-8 (Version None)
Quarter: 2006Q3

REPORT INFORMATION
  Report Type: 
  Country: None (occurrence: None)
  Receive Date: 20060811
  Receipt Date: 20060801
  Transmission Date: 20061208
  Serious: Yes (Life-Threatening, Hospitalization, Other)
  Sender: FDA-Public Use
  Company Number: US-JNJFOC-20060604961

PATIENT
  Sex: Female
  Weight: 81.65 kg

DRUGS (3)
  1. REMICADE [Suspect]
     Indication: RHEUMATOID ARTHRITIS
     Route: 042
  2. FOSAMAX [Concomitant]
     Indication: BONE DISORDER
  3. AZATHIOPRINE SODIUM [Concomitant]
     Indication: RHEUMATOID ARTHRITIS

REACTIONS (6)
  - ALOPECIA [None]
  - ANOREXIA [None]
  - BLOOD GLUCOSE DECREASED [None]
  - DIARRHOEA [None]
  - HEPATIC CIRRHOSIS [None]
  - LEUKOPENIA [None]
